FAERS Safety Report 12796607 (Version 1)
Quarter: 2016Q3

REPORT INFORMATION
  Report Type: Spontaneous
  Country: JP (occurrence: JP)
  Receive Date: 20160929
  Receipt Date: 20160929
  Transmission Date: 20161109
  Serious: Yes (Other)
  Sender: FDA-Public Use
  Company Number: JP-PFIZER INC-2016411122

PATIENT
  Age: 87 Year
  Sex: Male
  Weight: 35.3 kg

DRUGS (2)
  1. MEROPENEM 0.5G PFIZER [Suspect]
     Active Substance: MEROPENEM
     Dosage: 0.5 G, 1X/DAY
     Route: 041
     Dates: start: 20160829
  2. ROCEPHIN CHUGAI [Concomitant]
     Dosage: 1 G, 1X/DAY
     Route: 041
     Dates: start: 20160824, end: 20160829

REACTIONS (7)
  - Altered state of consciousness [None]
  - Hypoxia [None]
  - Hypoglycaemia [None]
  - Shock [None]
  - Delirium [Unknown]
  - Cerebral ischaemia [Unknown]
  - Restlessness [Unknown]

NARRATIVE: CASE EVENT DATE: 20160829
